FAERS Safety Report 23151738 (Version 1)
Quarter: 2023Q4

REPORT INFORMATION
  Report Type: Spontaneous
  Country: US (occurrence: US)
  Receive Date: 20231107
  Receipt Date: 20231107
  Transmission Date: 20240109
  Serious: No
  Sender: FDA-Public Use
  Company Number: US-GLAXOSMITHKLINE-USCH2023052365

PATIENT
  Age: 24 Year
  Sex: Female

DRUGS (2)
  1. NICODERM CQ [Suspect]
     Active Substance: NICOTINE
     Indication: Product used for unknown indication
     Dosage: UNK
     Dates: start: 20231027
  2. NICODERM CQ [Suspect]
     Active Substance: NICOTINE
     Dates: start: 20231027

REACTIONS (4)
  - Application site erythema [Unknown]
  - Application site pruritus [Unknown]
  - Application site burn [Unknown]
  - Product use issue [Unknown]

NARRATIVE: CASE EVENT DATE: 20231027
